FAERS Safety Report 15150209 (Version 1)
Quarter: 2018Q3

REPORT INFORMATION
  Report Type: Spontaneous
  Country: DE (occurrence: DE)
  Receive Date: 20180716
  Receipt Date: 20180716
  Transmission Date: 20181010
  Serious: Yes (Other)
  Sender: FDA-Public Use
  Company Number: DE-US WORLDMEDS, LLC-STA_00017021

PATIENT
  Age: 64 Year
  Sex: Female

DRUGS (1)
  1. APOMORPHINE HYDROCHLORIDE [Suspect]
     Active Substance: APOMORPHINE HYDROCHLORIDE
     Indication: PRODUCT USED FOR UNKNOWN INDICATION
     Dosage: FOR 14 HOURS WITH BASAL DOSE OF 0,9MG/H AND BOLUS OF 0,81ML/H
     Route: 058
     Dates: start: 20090612

REACTIONS (1)
  - Pelvic floor dyssynergia [Not Recovered/Not Resolved]

NARRATIVE: CASE EVENT DATE: 20110331
